FAERS Safety Report 24005733 (Version 3)
Quarter: 2024Q3

REPORT INFORMATION
  Report Type: Spontaneous
  Country: US (occurrence: US)
  Receive Date: 20240624
  Receipt Date: 20240923
  Transmission Date: 20241016
  Serious: Yes (Hospitalization)
  Sender: BRISTOL MYERS SQUIBB
  Company Number: US-BRISTOL-MYERS SQUIBB COMPANY-2024-100690

PATIENT
  Age: 36 Year
  Sex: Male

DRUGS (4)
  1. OPDIVO [Suspect]
     Active Substance: NIVOLUMAB
     Indication: Adrenal gland cancer
     Dosage: FREQ: OPDIVO 480MG EVERY 28 DAYS
     Dates: start: 202404
  2. OPDIVO [Suspect]
     Active Substance: NIVOLUMAB
     Dosage: 2X 240 MG VIAL
     Dates: start: 202404, end: 20240626
  3. YERVOY [Suspect]
     Active Substance: IPILIMUMAB
     Indication: Adrenal gland cancer
     Dosage: FREQUENCY: 90 MG EVERY 28 DAYS.
     Dates: start: 202404
  4. YERVOY [Suspect]
     Active Substance: IPILIMUMAB
     Dosage: YERVOY 2X 50 MG
     Dates: start: 202404, end: 20240626

REACTIONS (2)
  - Abdominal pain [Unknown]
  - Off label use [Unknown]
